FAERS Safety Report 13449297 (Version 2)
Quarter: 2017Q2

REPORT INFORMATION
  Report Type: Spontaneous
  Country: GB (occurrence: GB)
  Receive Date: 20170417
  Receipt Date: 20170629
  Transmission Date: 20170830
  Serious: Yes (Other)
  Sender: FDA-Public Use
  Company Number: GB-PFIZER INC-2017167068

PATIENT
  Sex: Female

DRUGS (5)
  1. MORPHINE SULPHATE [Suspect]
     Active Substance: MORPHINE SULFATE
  2. PETHIDINE [Suspect]
     Active Substance: MEPERIDINE
  3. SYNTOCINON [Suspect]
     Active Substance: OXYTOCIN
  4. MISOPROSTOL. [Suspect]
     Active Substance: MISOPROSTOL
     Indication: ABORTION INDUCED
     Route: 067
  5. MIFEGYNE [Suspect]
     Active Substance: MIFEPRISTONE
     Indication: ABORTION INDUCED

REACTIONS (8)
  - Incorrect dose administered [Unknown]
  - Incorrect route of drug administration [Unknown]
  - Nausea [Unknown]
  - Uterine rupture [Unknown]
  - Vaginal haemorrhage [Unknown]
  - Product use in unapproved indication [Unknown]
  - Vomiting [Unknown]
  - Abdominal pain lower [Unknown]
